FAERS Safety Report 14843044 (Version 1)
Quarter: 2018Q2

REPORT INFORMATION
  Report Type: Spontaneous
  Country: US (occurrence: US)
  Receive Date: 20180419
  Receipt Date: 20180419
  Transmission Date: 20180711
  Serious: Yes (Death, Other)
  Sender: FDA-Public Use
  Company Number: None

PATIENT
  Age: 66 Year
  Sex: Male
  Weight: 88.2 kg

DRUGS (16)
  1. DOCUSATE [Concomitant]
     Active Substance: DOCUSATE
  2. SIMVASTATIN. [Concomitant]
     Active Substance: SIMVASTATIN
  3. TRAMADOL. [Concomitant]
     Active Substance: TRAMADOL
  4. FOLIC ACID. [Concomitant]
     Active Substance: FOLIC ACID
  5. NIFEDIPINE. [Concomitant]
     Active Substance: NIFEDIPINE
  6. GLYCOLAX [Concomitant]
     Active Substance: POLYETHYLENE GLYCOL 3350
  7. PREDNISONE. [Concomitant]
     Active Substance: PREDNISONE
  8. CAPECITABINE. [Suspect]
     Active Substance: CAPECITABINE
     Indication: GASTRIC CANCER
     Route: 048
     Dates: start: 20170120, end: 20180419
  9. ALBUTEROL SULFATE. [Concomitant]
     Active Substance: ALBUTEROL SULFATE
  10. HCTZ [Concomitant]
     Active Substance: HYDROCHLOROTHIAZIDE
  11. BACLOFEN. [Concomitant]
     Active Substance: BACLOFEN
  12. ONDANSETRON [Concomitant]
     Active Substance: ONDANSETRON
  13. FAMOTIDINE. [Concomitant]
     Active Substance: FAMOTIDINE
  14. METFORMIN [Concomitant]
     Active Substance: METFORMIN HYDROCHLORIDE
  15. LOPRESSOR [Concomitant]
     Active Substance: METOPROLOL TARTRATE
  16. LOSARTAN. [Concomitant]
     Active Substance: LOSARTAN

REACTIONS (1)
  - Disease progression [None]
